FAERS Safety Report 14360755 (Version 1)
Quarter: 2018Q1

REPORT INFORMATION
  Report Type: Spontaneous
  Country: US (occurrence: US)
  Receive Date: 20180106
  Receipt Date: 20180106
  Transmission Date: 20180509
  Serious: Yes (Other)
  Sender: FDA-Public Use
  Company Number: US-JNJFOC-20171233480

PATIENT
  Sex: Female

DRUGS (1)
  1. SUDAFED PE CONGESTION [Suspect]
     Active Substance: PHENYLEPHRINE HYDROCHLORIDE
     Indication: SINUSITIS
     Route: 065

REACTIONS (1)
  - Sinusitis [Unknown]
